FAERS Safety Report 5267279-8 (Version None)
Quarter: 2007Q1

REPORT INFORMATION
  Report Type: 
  Country: None (occurrence: None)
  Receive Date: 20070316
  Receipt Date: 20070314
  Transmission Date: 20070707
  Serious: Yes (Hospitalization)
  Sender: FDA-Public Use
  Company Number: 2007-2357

PATIENT
  Age: 61 Year
  Sex: Male
  Weight: 80 kg

DRUGS (13)
  1. FLOLAN [Suspect]
     Indication: PULMONARY HYPERTENSION
     Dosage: 46ML PER DAY
     Route: 042
     Dates: start: 20031028
  2. KEPPRA [Suspect]
     Indication: DRUG USE FOR UNKNOWN INDICATION
     Route: 065
  3. UNSPECIFIED MEDICATION [Concomitant]
     Dosage: 50MG PER DAY
     Route: 048
  4. MAGNESIUM [Concomitant]
     Dosage: 500MG PER DAY
     Route: 048
  5. ZOFRAN [Concomitant]
     Dosage: 40MG THREE TIMES PER DAY
     Route: 048
  6. WARFARIN SODIUM [Concomitant]
  7. DIGOXIN [Concomitant]
     Dosage: .125MG PER DAY
     Route: 048
  8. FUROSEMIDE [Concomitant]
     Dosage: 40MG PER DAY
     Route: 048
  9. ACTIQ [Concomitant]
     Dosage: 1200MCG AS REQUIRED
  10. OXYCONTIN [Concomitant]
     Dosage: 160MG TWICE PER DAY
     Route: 048
  11. K-DUR 10 [Concomitant]
     Dosage: 20MEQ TWICE PER DAY
     Route: 048
  12. CLONAZEPAM [Concomitant]
     Dosage: .5MG PER DAY
     Route: 048
  13. OXYGEN [Concomitant]

REACTIONS (3)
  - CONVULSION [None]
  - LOSS OF CONSCIOUSNESS [None]
  - TREMOR [None]
